FAERS Safety Report 5045052-3 (Version None)
Quarter: 2006Q3

REPORT INFORMATION
  Report Type: 
  Country: None (occurrence: None)
  Receive Date: 20060705
  Receipt Date: 20060612
  Transmission Date: 20061208
  Serious: No
  Sender: FDA-Public Use
  Company Number: US200605005177

PATIENT
  Sex: Female

DRUGS (1)
  1. EVISTA [Suspect]
     Indication: RESORPTION BONE INCREASED
     Dosage: 60 MG, ORAL
     Route: 048
     Dates: start: 20060510

REACTIONS (3)
  - BREAST PAIN [None]
  - DYSSTASIA [None]
  - MUSCULOSKELETAL CHEST PAIN [None]
